FAERS Safety Report 7560230-7 (Version None)
Quarter: 2011Q2

REPORT INFORMATION
  Report Type: 
  Country: None (occurrence: None)
  Receive Date: 20110621
  Receipt Date: 20110606
  Transmission Date: 20111010
  Serious: Yes (Death, Hospitalization, Other)
  Sender: FDA-Public Use
  Company Number: FR-TEVA-285513ISR

PATIENT
  Age: 47 Year
  Sex: Male

DRUGS (6)
  1. DIDANOSINE [Suspect]
  2. LAMIVUDINE [Suspect]
     Indication: HIV INFECTION
  3. RITONAVIR [Suspect]
  4. ATAZANAVIR [Suspect]
  5. SORAFENIB [Suspect]
     Indication: HEPATIC NEOPLASM MALIGNANT NON-RESECTABLE
     Dosage: 800 MILLIGRAM;
  6. ABACAVIR [Suspect]

REACTIONS (8)
  - ABDOMINAL HERNIA [None]
  - DIARRHOEA [None]
  - DRUG INTERACTION [None]
  - DECREASED APPETITE [None]
  - NAUSEA [None]
  - ABDOMINAL PAIN [None]
  - HEPATIC ENZYME INCREASED [None]
  - ASTHENIA [None]
